FAERS Safety Report 5656144-X (Version None)
Quarter: 2008Q1

REPORT INFORMATION
  Report Type: 
  Country: None (occurrence: None)
  Receive Date: 20080305
  Receipt Date: 20080220
  Transmission Date: 20080703
  Serious: Yes (Other)
  Sender: FDA-Public Use
  Company Number: 18403

PATIENT
  Age: 14 Year
  Sex: Male

DRUGS (1)
  1. METHOTREXATE [Suspect]
     Indication: BONE SARCOMA
     Dosage: 12 G/M2 OTH IV
     Route: 042

REACTIONS (5)
  - AFFECT LABILITY [None]
  - DYSPHASIA [None]
  - ENCEPHALOPATHY [None]
  - HEMIPARESIS [None]
  - MOVEMENT DISORDER [None]
